FAERS Safety Report 7516555-4 (Version None)
Quarter: 2011Q2

REPORT INFORMATION
  Report Type: 
  Country: None (occurrence: None)
  Receive Date: 20110601
  Receipt Date: 20110520
  Transmission Date: 20111010
  Serious: Yes (Hospitalization)
  Sender: FDA-Public Use
  Company Number: B0722357A

PATIENT
  Sex: Male

DRUGS (5)
  1. PAZOPANIB [Suspect]
     Route: 048
     Dates: start: 20110301
  2. IFOSFAMIDE [Suspect]
     Route: 042
     Dates: start: 20110222, end: 20110429
  3. THYRAX [Concomitant]
     Indication: HYPOTHYROIDISM
     Dosage: .125MG PER DAY
     Route: 048
     Dates: start: 20090901
  4. PANTOPRAZOLE [Concomitant]
     Dosage: 40MG PER DAY
     Route: 048
     Dates: start: 20110124
  5. AMLODIPINE [Concomitant]
     Indication: HYPERTENSION
     Dosage: 10MG PER DAY
     Route: 048
     Dates: start: 20110316

REACTIONS (3)
  - BLOOD CREATININE INCREASED [None]
  - NEUTROPENIC INFECTION [None]
  - HYPOKALAEMIA [None]
